FAERS Safety Report 23029271 (Version 1)
Quarter: 2023Q4

REPORT INFORMATION
  Report Type: Report from Study
  Country: US (occurrence: US)
  Receive Date: 20231004
  Receipt Date: 20231004
  Transmission Date: 20240110
  Serious: Yes (Other)
  Sender: FDA-Public Use
  Company Number: US-BAYER-2023A136738

PATIENT
  Age: 37 Year
  Sex: Female

DRUGS (1)
  1. STIVARGA [Suspect]
     Active Substance: REGORAFENIB
     Indication: Rectal cancer
     Dosage: 80 MG, QD 2 FOR 1 DAYS EVERY 28 DAYS
     Route: 048
     Dates: start: 20230825

REACTIONS (5)
  - Gait disturbance [None]
  - Blister [Recovering/Resolving]
  - Skin exfoliation [Unknown]
  - Dry skin [Unknown]
  - Off label use [None]

NARRATIVE: CASE EVENT DATE: 20230825
